FAERS Safety Report 5092032-8 (Version None)
Quarter: 2006Q3

REPORT INFORMATION
  Report Type: 
  Country: None (occurrence: None)
  Receive Date: 20060825
  Receipt Date: 20060815
  Transmission Date: 20061208
  Serious: Yes (Other)
  Sender: FDA-Public Use
  Company Number: 2006100059

PATIENT
  Age: 72 Year
  Sex: Male

DRUGS (3)
  1. XALATAN [Suspect]
     Indication: INTRAOCULAR PRESSURE TEST
  2. COSOPT [Suspect]
     Indication: INTRAOCULAR PRESSURE TEST
     Dosage: OPHTHALMIC
     Route: 047
  3. DIAMOX [Suspect]
     Indication: INTRAOCULAR PRESSURE TEST
     Dosage: 500 MG (250 MG, 2 IN 1 D)

REACTIONS (9)
  - BLINDNESS UNILATERAL [None]
  - CHOROIDAL HAEMORRHAGE [None]
  - EYE HAEMORRHAGE [None]
  - EYE PAIN [None]
  - INTRAOCULAR PRESSURE TEST ABNORMAL [None]
  - IRIS ADHESIONS [None]
  - OPTIC NERVE CUPPING [None]
  - RETINAL HAEMORRHAGE [None]
  - VISUAL ACUITY REDUCED [None]
